FAERS Safety Report 9521863 (Version 1)
Quarter: 2013Q3

REPORT INFORMATION
  Report Type: Spontaneous
  Country: JP (occurrence: JP)
  Receive Date: 20130913
  Receipt Date: 20130913
  Transmission Date: 20140515
  Serious: Yes (Hospitalization)
  Sender: FDA-Public Use
  Company Number: JP-ELI_LILLY_AND_COMPANY-JP201309001194

PATIENT
  Age: 75 Year
  Sex: Female

DRUGS (2)
  1. HUMALOG 50% LISPRO, 50% NPL [Suspect]
     Indication: DIABETES MELLITUS
     Dosage: 6 IU, TID
     Route: 058
     Dates: start: 20130823
  2. HUMALOG 25% LISPRO, 75% NPL [Suspect]
     Indication: DIABETES MELLITUS
     Dosage: 16 IU, QD
     Route: 058
     Dates: start: 2011, end: 20130822

REACTIONS (6)
  - Heat illness [Recovered/Resolved]
  - Hospitalisation [Recovered/Resolved]
  - Musculoskeletal stiffness [Unknown]
  - Muscle spasms [Unknown]
  - Dyspnoea [Unknown]
  - Hunger [Unknown]
